FAERS Safety Report 9964418 (Version 2)
Quarter: 2014Q2

REPORT INFORMATION
  Report Type: Spontaneous
  Country: JP (occurrence: JP)
  Receive Date: 20140305
  Receipt Date: 20140624
  Transmission Date: 20141212
  Serious: Yes (Life-Threatening, Hospitalization)
  Sender: FDA-Public Use
  Company Number: JP-PFIZER INC-2014063580

PATIENT
  Age: 89 Year
  Sex: Female
  Weight: 31.6 kg

DRUGS (13)
  1. ALDACTONE A [Suspect]
     Indication: CARDIAC FAILURE
     Dosage: 75 MG, DAILY
     Route: 048
     Dates: start: 20100421, end: 20131007
  2. RENIVACE [Concomitant]
     Dosage: UNK
     Route: 048
  3. LANIRAPID [Concomitant]
     Dosage: UNK
     Route: 048
  4. WARFARIN [Concomitant]
     Dosage: UNK
     Route: 048
  5. RYTHMODAN [Concomitant]
     Dosage: UNK
     Route: 048
  6. MYTELASE [Concomitant]
     Dosage: UNK
     Route: 048
  7. MARZULENE S [Concomitant]
     Dosage: UNK
     Route: 048
  8. PREDONINE [Concomitant]
     Dosage: UNK
     Route: 048
  9. TAKEPRON [Concomitant]
     Dosage: UNK
     Route: 048
  10. LENDORMIN D [Concomitant]
     Dosage: UNK
     Route: 048
  11. MIYA BM [Concomitant]
     Dosage: UNK
     Route: 048
  12. FRANDOL [Concomitant]
     Dosage: UNK
     Route: 062
  13. BENET [Concomitant]
     Dosage: UNK
     Route: 048

REACTIONS (2)
  - Hyperkalaemia [Recovered/Resolved]
  - Pneumonia aspiration [Unknown]
